FAERS Safety Report 17851527 (Version 1)
Quarter: 2020Q2

REPORT INFORMATION
  Report Type: Spontaneous
  Country: CA (occurrence: CA)
  Receive Date: 20200602
  Receipt Date: 20200602
  Transmission Date: 20200714
  Serious: Yes (Death, Hospitalization)
  Sender: FDA-Public Use
  Company Number: CA-ROCHE-2611038

PATIENT
  Age: 68 Year
  Sex: Male
  Weight: 74 kg

DRUGS (12)
  1. CYTOXAN [Suspect]
     Active Substance: CYCLOPHOSPHAMIDE
     Indication: PRODUCT USED FOR UNKNOWN INDICATION
     Dosage: DURATION- 61.0 DAYS
     Route: 065
  2. FINASTERIDE. [Concomitant]
     Active Substance: FINASTERIDE
  3. IDELALISIB [Concomitant]
     Active Substance: IDELALISIB
  4. ZOFRAN [Concomitant]
     Active Substance: ONDANSETRON HYDROCHLORIDE
  5. DEXAMETHASONE. [Concomitant]
     Active Substance: DEXAMETHASONE
  6. IBRUTINIB [Concomitant]
     Active Substance: IBRUTINIB
  7. PROCHLORPERAZINE. [Concomitant]
     Active Substance: PROCHLORPERAZINE
  8. FLUDARABINE PHOSPHATE. [Suspect]
     Active Substance: FLUDARABINE PHOSPHATE
     Indication: PRODUCT USED FOR UNKNOWN INDICATION
     Dosage: 61.0 DAYS
     Route: 065
  9. CETIRIZINE HYDROCHLORIDE. [Concomitant]
     Active Substance: CETIRIZINE HYDROCHLORIDE
  10. RITUXIMAB. [Suspect]
     Active Substance: RITUXIMAB
     Indication: CHRONIC LYMPHOCYTIC LEUKAEMIA
     Dosage: DURATION  1825.0 DAYS
     Route: 042
  11. PREGABALIN. [Concomitant]
     Active Substance: PREGABALIN
  12. SULFAMETHOXAZOLE [Concomitant]
     Active Substance: SULFAMETHOXAZOLE

REACTIONS (8)
  - Platelet count decreased [Fatal]
  - Abdominal pain lower [Fatal]
  - Neuropathy peripheral [Fatal]
  - Neutropenia [Fatal]
  - Weight increased [Fatal]
  - Death [Fatal]
  - Cytopenia [Fatal]
  - Joint swelling [Fatal]
